FAERS Safety Report 6029940-7 (Version None)
Quarter: 2009Q1

REPORT INFORMATION
  Report Type: 
  Country: None (occurrence: None)
  Receive Date: 20090107
  Receipt Date: 20080828
  Transmission Date: 20090719
  Serious: Yes (Death, Other)
  Sender: FDA-Public Use
  Company Number: US-BRISTOL-MYERS SQUIBB COMPANY-14328157

PATIENT
  Age: 9 Year
  Sex: Male

DRUGS (3)
  1. SYMMETREL [Suspect]
     Indication: NEUROMYOPATHY
     Dosage: TOTAL DAILY DOSE-250MG/D(125 MG PO Q12H); FORMULATION=SYRUP
     Route: 048
     Dates: end: 20060119
  2. SYMMETREL [Suspect]
     Indication: INFLUENZA IMMUNISATION
     Dosage: TOTAL DAILY DOSE-250MG/D(125 MG PO Q12H); FORMULATION=SYRUP
     Route: 048
     Dates: end: 20060119
  3. TRAZODONE HCL [Suspect]
     Indication: AUTISM
     Dates: end: 20060119

REACTIONS (7)
  - ACCIDENTAL OVERDOSE [None]
  - AGITATION [None]
  - DRUG TOXICITY [None]
  - INSOMNIA [None]
  - LOSS OF CONSCIOUSNESS [None]
  - NERVOUSNESS [None]
  - TREMOR [None]
